FAERS Safety Report 9399785 (Version 1)
Quarter: 2013Q3

REPORT INFORMATION
  Report Type: Report from Study
  Country: CL (occurrence: CL)
  Receive Date: 20130715
  Receipt Date: 20130715
  Transmission Date: 20140515
  Serious: Yes (Other)
  Sender: FDA-Public Use
  Company Number: PHHY2013CL048251

PATIENT
  Age: 83 Year
  Sex: Female

DRUGS (1)
  1. TAREG D [Suspect]
     Indication: HYPERTENSION
     Dosage: UNK UKN(160/25 MG), QD

REACTIONS (2)
  - Viral infection [Recovered/Resolved]
  - Deafness [Not Recovered/Not Resolved]
